FAERS Safety Report 12086158 (Version 1)
Quarter: 2016Q1

REPORT INFORMATION
  Report Type: Spontaneous
  Country: GB (occurrence: GB)
  Receive Date: 20160217
  Receipt Date: 20160217
  Transmission Date: 20160526
  Serious: Yes (Congenital Anomaly)
  Sender: FDA-Public Use
  Company Number: GB-TEVA-633517ACC

PATIENT

DRUGS (4)
  1. SYMBICORT [Suspect]
     Active Substance: BUDESONIDE\FORMOTEROL FUMARATE DIHYDRATE
     Dosage: 1 OR 2 PUFFS TWICE A DAY
     Route: 064
  2. CETIRIZINE [Suspect]
     Active Substance: CETIRIZINE HYDROCHLORIDE
     Dosage: 10 MILLIGRAM DAILY;
     Route: 064
  3. BRICANYL [Suspect]
     Active Substance: TERBUTALINE SULFATE
     Dosage: 500MICROGRAMS/DOSE
     Route: 064
  4. MONTELUKAST [Suspect]
     Active Substance: MONTELUKAST SODIUM
     Dosage: 10 MILLIGRAM DAILY; AT NIGHT
     Route: 064

REACTIONS (1)
  - Limb reduction defect [Not Recovered/Not Resolved]

NARRATIVE: CASE EVENT DATE: 20160115
